FAERS Safety Report 11854507 (Version 2)
Quarter: 2015Q4

REPORT INFORMATION
  Report Type: Report from Study
  Country: MX (occurrence: MX)
  Receive Date: 20151221
  Receipt Date: 20151224
  Transmission Date: 20160305
  Serious: Yes (Death, Hospitalization)
  Sender: FDA-Public Use
  Company Number: MX-ROCHE-1680461

PATIENT
  Age: 82 Year
  Sex: Male

DRUGS (1)
  1. PEGASYS [Suspect]
     Active Substance: PEGINTERFERON ALFA-2A
     Indication: HEPATITIS C
     Dosage: TREATMENT WITH 48 WEEKS.
     Route: 065
     Dates: end: 20150805

REACTIONS (7)
  - Cerebral infarction [Fatal]
  - Drug ineffective [Fatal]
  - Food craving [Unknown]
  - Hepatitis C [Fatal]
  - Haematemesis [Unknown]
  - Pneumonia [Fatal]
  - Vomiting [Unknown]

NARRATIVE: CASE EVENT DATE: 201511
